FAERS Safety Report 9525221 (Version 5)
Quarter: 2013Q4

REPORT INFORMATION
  Report Type: Report from Study
  Country: US (occurrence: US)
  Receive Date: 20130916
  Receipt Date: 20131007
  Transmission Date: 20140711
  Serious: Yes (Life-Threatening, Hospitalization)
  Sender: FDA-Public Use
  Company Number: US-NOVOPROD-386458

PATIENT
  Age: 57 Year
  Sex: Male
  Weight: 160.54 kg

DRUGS (1)
  1. LIRAGLUTIDE FLEXPEN [Suspect]
     Indication: TYPE 2 DIABETES MELLITUS
     Dosage: 1.8 MG, QD
     Route: 058
     Dates: start: 20110804, end: 20130201

REACTIONS (2)
  - Coronary artery stenosis [Recovered/Resolved]
  - Percutaneous coronary intervention [Recovered/Resolved]
